FAERS Safety Report 6865834-2 (Version None)
Quarter: 2010Q3

REPORT INFORMATION
  Report Type: 
  Country: None (occurrence: None)
  Receive Date: 20100722
  Receipt Date: 20100719
  Transmission Date: 20110219
  Serious: Yes (Hospitalization)
  Sender: FDA-Public Use
  Company Number: US-SP-2010-02926

PATIENT
  Sex: Male

DRUGS (1)
  1. THERACYS [Suspect]
     Indication: BLADDER CANCER
     Route: 043
     Dates: start: 20100523, end: 20100523

REACTIONS (5)
  - ARTHRALGIA [None]
  - HAEMORRHAGE URINARY TRACT [None]
  - MYALGIA [None]
  - PYREXIA [None]
  - SEPSIS [None]
